FAERS Safety Report 19349178 (Version 1)
Quarter: 2021Q2

REPORT INFORMATION
  Report Type: Spontaneous
  Country: US (occurrence: US)
  Receive Date: 20210528
  Receipt Date: 20210528
  Transmission Date: 20210717
  Serious: Yes (Hospitalization)
  Sender: FDA-Public Use
  Company Number: None

PATIENT
  Age: 77 Year
  Sex: Male
  Weight: 71.7 kg

DRUGS (1)
  1. PEMBROLIZUMAB, 200 MG [Suspect]
     Active Substance: PEMBROLIZUMAB
     Indication: SQUAMOUS CELL CARCINOMA OF THE HYPOPHARYNX
     Route: 042
     Dates: start: 20201029

REACTIONS (3)
  - Infection [None]
  - Cerebrospinal fluid retention [None]
  - Swelling [None]

NARRATIVE: CASE EVENT DATE: 20210527
